FAERS Safety Report 7999647-5 (Version None)
Quarter: 2011Q4

REPORT INFORMATION
  Report Type: 
  Country: None (occurrence: None)
  Receive Date: 20111221
  Receipt Date: 20111216
  Transmission Date: 20120403
  Serious: Yes (Death)
  Sender: FDA-Public Use
  Company Number: US-ASTRAZENECA-2011SE76906

PATIENT
  Age: 17 Year
  Sex: Female

DRUGS (18)
  1. CITALOPRAM [Suspect]
     Route: 048
  2. GUAIFENESIN [Suspect]
     Route: 048
  3. NAPROXEN [Suspect]
     Route: 048
  4. LOPERAMIDE HCL [Suspect]
     Route: 048
  5. HYOSCYAMINE [Suspect]
     Route: 048
  6. MONTELUKAST SODIUM [Suspect]
     Route: 048
  7. IBUPROFEN [Suspect]
     Route: 048
  8. METHYLPHENIDATE [Suspect]
     Route: 048
  9. HALOPERIDOL [Suspect]
     Route: 048
  10. EMOUTHWASH (ETHANOL) [Suspect]
     Route: 048
  11. MAGNESIUM [Suspect]
     Route: 048
  12. DEXTROMETHORPHAN HYDROBROMIDE [Suspect]
     Route: 048
  13. PSEUDOEPHEDRINE HCL [Suspect]
     Route: 048
  14. FLUOXETINE [Suspect]
     Route: 048
  15. PHENOL [Suspect]
     Route: 048
  16. LAXATIVE [Suspect]
     Route: 048
  17. ROSUVASTATIN [Suspect]
     Route: 048
  18. ACETAMINOPHEN AND HYDROCODONE BITARTRATE [Suspect]
     Route: 048

REACTIONS (2)
  - COMPLETED SUICIDE [None]
  - TOXICITY TO VARIOUS AGENTS [None]
